FAERS Safety Report 5375261-5 (Version None)
Quarter: 2007Q2

REPORT INFORMATION
  Report Type: 
  Country: None (occurrence: None)
  Receive Date: 20070629
  Receipt Date: 20070411
  Transmission Date: 20071010
  Serious: Yes (Other)
  Sender: FDA-Public Use
  Company Number: US-ASTRAZENECA-2007UW07133

PATIENT
  Age: 73 Year
  Sex: Female
  Weight: 68 kg

DRUGS (5)
  1. TAMOXIFEN CITRATE [Suspect]
     Indication: BREAST CANCER
     Route: 048
  2. LISINOPRIL [Concomitant]
  3. AMBIEN [Concomitant]
  4. CALCIUM CHLORIDE [Concomitant]
  5. CENTRUM SILVER [Concomitant]

REACTIONS (1)
  - DEEP VEIN THROMBOSIS [None]
